FAERS Safety Report 8525018-9 (Version None)
Quarter: 2012Q3

REPORT INFORMATION
  Report Type: 
  Country: None (occurrence: None)
  Receive Date: 20120720
  Receipt Date: 20120710
  Transmission Date: 20120928
  Serious: Yes (Death, Other)
  Sender: FDA-Public Use
  Company Number: DE-BRISTOL-MYERS SQUIBB COMPANY-16769598

PATIENT
  Age: 73 Year
  Sex: Male
  Weight: 72 kg

DRUGS (5)
  1. MOLSIDOMINA [Concomitant]
  2. GLIMEPIRIDE [Concomitant]
  3. ASPIRIN [Concomitant]
  4. METFORMIN HCL [Suspect]
     Indication: TYPE 2 DIABETES MELLITUS
     Route: 048
     Dates: start: 20120526
  5. SIMVASTATIN [Concomitant]

REACTIONS (2)
  - RESUSCITATION [None]
  - LACTIC ACIDOSIS [None]
